FAERS Safety Report 8276642-2 (Version None)
Quarter: 2012Q2

REPORT INFORMATION
  Report Type: 
  Country: None (occurrence: None)
  Receive Date: 20120412
  Receipt Date: 20120410
  Transmission Date: 20120825
  Serious: Yes (Death, Hospitalization, Other)
  Sender: FDA-Public Use
  Company Number: PHHY2011JP76030

PATIENT
  Sex: Female
  Weight: 48 kg

DRUGS (13)
  1. BASEN [Concomitant]
     Dosage: 0.3 MG, UNK
     Route: 048
     Dates: start: 20081211, end: 20100626
  2. VALSARTAN [Suspect]
     Dosage: 40 MG, BID
     Route: 048
     Dates: start: 20081211, end: 20100626
  3. CRESTOR [Concomitant]
     Dosage: 2.5 MG, UNK
     Route: 048
     Dates: start: 20081211, end: 20100626
  4. ASPIRIN [Concomitant]
     Dosage: 100 MG, UNK
     Route: 048
     Dates: start: 20080827, end: 20100626
  5. PLAVIX [Concomitant]
     Dosage: 75 MG, UNK
     Route: 048
     Dates: start: 20081211, end: 20100626
  6. ARGAMATE [Concomitant]
     Dosage: 756 MG, UNK
     Route: 048
     Dates: start: 20081211, end: 20100626
  7. LANSOPRAZOLE [Concomitant]
     Dosage: 15 MG, UNK
     Route: 048
     Dates: start: 20080827, end: 20100626
  8. WARFARIN SODIUM [Concomitant]
     Dosage: 1.5 MG, UNK
     Route: 048
     Dates: start: 20081211, end: 20100626
  9. AMARYL [Concomitant]
     Dosage: 4 MG, UNK
     Route: 048
     Dates: start: 20081211, end: 20100626
  10. VALSARTAN [Suspect]
     Dosage: 80 MG, QD
     Route: 048
     Dates: start: 20081006, end: 20081211
  11. CARVEDILOL [Concomitant]
     Indication: HYPERTENSION
     Dosage: 20 MG, UNK
     Route: 048
     Dates: start: 20081211, end: 20100626
  12. ALDACTONE [Concomitant]
     Indication: HYPERTENSION
     Dosage: 25 MG, UNK
     Route: 048
     Dates: start: 20081006, end: 20100626
  13. ADALAT CC [Concomitant]
     Indication: HYPERTENSION
     Dosage: 20 MG, UNK
     Route: 048
     Dates: start: 20080827, end: 20100626

REACTIONS (4)
  - CEREBRAL INFARCTION [None]
  - ATRIAL FIBRILLATION [None]
  - BLOOD PRESSURE DIASTOLIC DECREASED [None]
  - GASTROINTESTINAL HAEMORRHAGE [None]
